FAERS Safety Report 17703098 (Version 1)
Quarter: 2020Q2

REPORT INFORMATION
  Report Type: Spontaneous
  Country: US (occurrence: US)
  Receive Date: 20200423
  Receipt Date: 20200423
  Transmission Date: 20200714
  Serious: No
  Sender: FDA-Public Use
  Company Number: US-DERMIRA, INC.-US-2020DER000073

PATIENT
  Age: 13 Year
  Sex: Female
  Weight: 62.59 kg

DRUGS (1)
  1. QBREXZA [Suspect]
     Active Substance: GLYCOPYRRONIUM TOSYLATE
     Indication: HYPERHIDROSIS
     Dosage: UNK, QD
     Route: 061
     Dates: start: 20200206, end: 20200206

REACTIONS (17)
  - Crying [Recovered/Resolved]
  - Hyperhidrosis [Recovered/Resolved]
  - Peripheral swelling [Recovered/Resolved]
  - Skin swelling [Recovered/Resolved]
  - Erythema [Recovering/Resolving]
  - Dry mouth [Not Recovered/Not Resolved]
  - Back pain [Recovered/Resolved]
  - Pain [Recovered/Resolved]
  - Tongue discolouration [Recovering/Resolving]
  - Dysphagia [Not Recovered/Not Resolved]
  - Rash [Recovered/Resolved]
  - Urinary hesitation [Recovered/Resolved]
  - Abdominal pain upper [Recovered/Resolved]
  - Tongue dry [Not Recovered/Not Resolved]
  - Dysuria [Not Recovered/Not Resolved]
  - Skin exfoliation [Unknown]
  - Dry skin [Not Recovered/Not Resolved]

NARRATIVE: CASE EVENT DATE: 20200207
